FAERS Safety Report 9436521 (Version 1)
Quarter: 2013Q3

REPORT INFORMATION
  Report Type: Spontaneous
  Country: US (occurrence: US)
  Receive Date: 20130802
  Receipt Date: 20130802
  Transmission Date: 20140515
  Serious: No
  Sender: FDA-Public Use
  Company Number: US-OPTIMER-20130054

PATIENT
  Sex: Female
  Weight: 81.63 kg

DRUGS (11)
  1. DIFICID [Suspect]
     Indication: CLOSTRIDIUM DIFFICILE COLITIS
     Dosage: 200 MG, BID
     Route: 048
     Dates: start: 20130204, end: 20130213
  2. DIFICID [Suspect]
     Dosage: 200 MG, BID
     Route: 048
     Dates: start: 20130225, end: 20130306
  3. FLAGYL [Concomitant]
     Indication: CLOSTRIDIUM DIFFICILE COLITIS
  4. VANCOMYCIN [Concomitant]
     Indication: CLOSTRIDIUM DIFFICILE COLITIS
  5. PROZAC [Concomitant]
  6. CRESTOR [Concomitant]
  7. TRICOR [Concomitant]
  8. ATENOLOL [Concomitant]
  9. NORVASC [Concomitant]
  10. ASPIRIN [Concomitant]
  11. HYDROCHLOROTHIAZIDE [Concomitant]

REACTIONS (1)
  - Therapeutic response delayed [Recovered/Resolved]
